FAERS Safety Report 4297302-9 (Version None)
Quarter: 2004Q1

REPORT INFORMATION
  Report Type: 
  Country: None (occurrence: None)
  Receive Date: 20040218
  Receipt Date: 20010515
  Transmission Date: 20041129
  Serious: Yes (Hospitalization)
  Sender: FDA-Public Use
  Company Number: 200113626FR

PATIENT
  Age: 82 Year
  Sex: Female

DRUGS (2)
  1. LASILIX FAIBLE [Suspect]
     Route: 048
  2. KOREC 5 MG [Suspect]
     Route: 048

REACTIONS (7)
  - BLOOD CALCIUM INCREASED [None]
  - BLOOD GLUCOSE INCREASED [None]
  - BLOOD SODIUM DECREASED [None]
  - HAEMATEMESIS [None]
  - PCO2 ABNORMAL [None]
  - PROTEIN TOTAL INCREASED [None]
  - RENAL FAILURE ACUTE [None]
